FAERS Safety Report 7087360-0 (Version None)
Quarter: 2010Q4

REPORT INFORMATION
  Report Type: 
  Country: None (occurrence: None)
  Receive Date: 20101108
  Receipt Date: 20101028
  Transmission Date: 20110411
  Serious: Yes (Hospitalization)
  Sender: FDA-Public Use
  Company Number: US-BIOGENIDEC-2010BI027175

PATIENT
  Age: 71 Year
  Sex: Female

DRUGS (1)
  1. AVONEX [Suspect]
     Indication: MULTIPLE SCLEROSIS
     Route: 030
     Dates: start: 20030415

REACTIONS (5)
  - CELLULITIS [None]
  - IMPAIRED HEALING [None]
  - TIBIA FRACTURE [None]
  - VASCULAR GRAFT [None]
  - WOUND INFECTION STAPHYLOCOCCAL [None]
